FAERS Safety Report 6293751-8 (Version None)
Quarter: 2009Q3

REPORT INFORMATION
  Report Type: 
  Country: None (occurrence: None)
  Receive Date: 20090803
  Receipt Date: 20090724
  Transmission Date: 20100115
  Serious: Yes (Hospitalization)
  Sender: FDA-Public Use
  Company Number: BR-AMGEN-US357914

PATIENT
  Sex: Female
  Weight: 82 kg

DRUGS (5)
  1. ENBREL [Suspect]
     Indication: PSORIASIS
     Dosage: 25 MG; UNSPECIFIED FREQUENCY
     Route: 058
     Dates: start: 20090301, end: 20090401
  2. LEFLUNOMIDE [Suspect]
     Indication: ARTHRITIS
     Dosage: UNSPECIFIED
     Dates: start: 20090401
  3. IMIPRAMINE [Concomitant]
     Indication: DEPRESSION
     Dosage: UNSPECIFIED
  4. CARBAMAZEPINE [Concomitant]
     Indication: CONVULSION
     Dosage: UNSPECIFIED
  5. RIVOTRIL [Concomitant]
     Indication: ANXIETY
     Dosage: UNSPECIFIED

REACTIONS (7)
  - DECREASED APPETITE [None]
  - DIARRHOEA [None]
  - HEADACHE [None]
  - HYPERHIDROSIS [None]
  - NAUSEA [None]
  - SYNCOPE [None]
  - VOMITING [None]
